FAERS Safety Report 5654117-4 (Version None)
Quarter: 2008Q1

REPORT INFORMATION
  Report Type: 
  Country: None (occurrence: None)
  Receive Date: 20080306
  Receipt Date: 20080225
  Transmission Date: 20080703
  Serious: Yes (Other)
  Sender: FDA-Public Use
  Company Number: ES-PFIZER INC-2008018679

PATIENT
  Age: 72 Year
  Sex: Male

DRUGS (4)
  1. GLIPIZIDE [Suspect]
     Indication: TYPE 2 DIABETES MELLITUS
  2. ENALAPRIL MALEATE [Interacting]
  3. CALCIUM CHANNEL BLOCKERS [Concomitant]
  4. ALPHA-ADRENOCEPTOR BLOCKING AGENTS [Concomitant]

REACTIONS (2)
  - DRUG INTERACTION [None]
  - PANCYTOPENIA [None]
